FAERS Safety Report 7331912-7 (Version None)
Quarter: 2011Q1

REPORT INFORMATION
  Report Type: 
  Country: None (occurrence: None)
  Receive Date: 20110304
  Receipt Date: 20100428
  Transmission Date: 20110831
  Serious: Yes (Hospitalization, Other)
  Sender: FDA-Public Use
  Company Number: US-PFIZER INC-2009247492

PATIENT
  Sex: Female
  Weight: 70 kg

DRUGS (2)
  1. DILANTIN [Suspect]
     Indication: CONVULSION
     Dosage: 250 MG, 1X/DAY
     Route: 048
     Dates: start: 20020519
  2. DILANTIN [Suspect]
     Indication: ECLAMPSIA
     Dosage: 230 MG, 1X/DAY
     Route: 048
     Dates: start: 20020521, end: 20020619

REACTIONS (1)
  - STEVENS-JOHNSON SYNDROME [None]
